FAERS Safety Report 6355977-4 (Version None)
Quarter: 2009Q3

REPORT INFORMATION
  Report Type: 
  Country: None (occurrence: None)
  Receive Date: 20090915
  Receipt Date: 20090903
  Transmission Date: 20100115
  Serious: Yes (Other)
  Sender: FDA-Public Use
  Company Number: CY-AMGEN-US356941

PATIENT
  Age: 67 Year
  Sex: Female

DRUGS (2)
  1. ENBREL [Suspect]
     Indication: RHEUMATOID ARTHRITIS
     Route: 058
     Dates: start: 20090626, end: 20090801
  2. LYRICA [Suspect]
     Indication: NEURALGIA
     Dosage: UNSPECIFIED
     Route: 048
     Dates: start: 20090625

REACTIONS (1)
  - EYELID PTOSIS [None]
